FAERS Safety Report 24599605 (Version 3)
Quarter: 2024Q4

REPORT INFORMATION
  Report Type: Spontaneous
  Country: US (occurrence: US)
  Receive Date: 20241110
  Receipt Date: 20241225
  Transmission Date: 20250115
  Serious: No
  Sender: SANOFI AVENTIS
  Company Number: US-SA-2024SA314297

PATIENT
  Age: 49 Year
  Sex: Female

DRUGS (1)
  1. DUPIXENT [Suspect]
     Active Substance: DUPILUMAB
     Indication: Product used for unknown indication
     Dosage: 40 MG, QW
     Route: 058

REACTIONS (4)
  - Dyspepsia [Unknown]
  - Injection site erythema [Recovered/Resolved]
  - Rash [Unknown]
  - Incorrect dose administered [Unknown]
